FAERS Safety Report 5103194-8 (Version None)
Quarter: 2006Q3

REPORT INFORMATION
  Report Type: 
  Country: None (occurrence: None)
  Receive Date: 20060912
  Receipt Date: 20060912
  Transmission Date: 20061208
  Serious: Yes (Life-Threatening, Hospitalization, Other)
  Sender: FDA-Public Use
  Company Number: None

PATIENT
  Age: 65 Year
  Sex: Female
  Weight: 52.1637 kg

DRUGS (10)
  1. LYRICA [Suspect]
     Indication: NEUROPATHY
     Dosage: 50 MG 3 TIMES A DAY
     Dates: start: 20060718, end: 20060807
  2. ZOCOR [Concomitant]
  3. CAZAAR [Concomitant]
  4. PLAVIX [Concomitant]
  5. COREG [Concomitant]
  6. DIGITEK [Concomitant]
  7. COUMADIN [Concomitant]
  8. PREDNISONE [Concomitant]
  9. ASPIRIN [Concomitant]
  10. VALLIUM [Concomitant]

REACTIONS (14)
  - AMNESIA [None]
  - ARTHRALGIA [None]
  - ASTHENIA [None]
  - BACK PAIN [None]
  - BALANCE DISORDER [None]
  - BUTTOCK PAIN [None]
  - CONFUSIONAL STATE [None]
  - FALL [None]
  - FATIGUE [None]
  - FEELING ABNORMAL [None]
  - HEAD INJURY [None]
  - PAIN [None]
  - PAIN IN EXTREMITY [None]
  - SOMNOLENCE [None]
